FAERS Safety Report 9792039 (Version 3)
Quarter: 2014Q4

REPORT INFORMATION
  Report Type: Spontaneous
  Country: US (occurrence: US)
  Receive Date: 20140102
  Receipt Date: 20141015
  Transmission Date: 20150529
  Serious: Yes (Hospitalization, Other)
  Sender: FDA-Public Use
  Company Number: US-BAYER-2013-157457

PATIENT
  Age: 28 Year
  Sex: Female
  Weight: 87.53 kg

DRUGS (6)
  1. AMBIEN [Concomitant]
     Active Substance: ZOLPIDEM TARTRATE
     Indication: INSOMNIA
     Dosage: 10 MG, TIW
     Route: 048
     Dates: start: 2010
  2. ALBUTEROL INHALER [Concomitant]
     Active Substance: ALBUTEROL
     Dosage: 2 PUFF(S), PRN
  3. MIRENA [Suspect]
     Active Substance: LEVONORGESTREL
     Indication: CONTRACEPTION
     Dosage: 20 MCG/24HR, CONT
     Route: 015
     Dates: start: 20100805, end: 20130507
  4. EPINEPHRINE. [Concomitant]
     Active Substance: EPINEPHRINE
     Indication: ARTHROPOD STING
     Dosage: AS NEEDED
  5. XANAX [Concomitant]
     Active Substance: ALPRAZOLAM
     Dosage: 1 MG, 1 TABLET PER WEEK
     Route: 048
  6. SYNTHROID [Concomitant]
     Active Substance: LEVOTHYROXINE SODIUM
     Indication: HYPOTHYROIDISM
     Dosage: 25 ?G, UNK
     Route: 048
     Dates: start: 2010

REACTIONS (11)
  - Vulvovaginal pain [None]
  - Device issue [None]
  - Genital haemorrhage [None]
  - Pain [None]
  - Injury [None]
  - Anxiety [None]
  - Emotional distress [None]
  - Abdominal pain lower [None]
  - Device difficult to use [None]
  - Uterine perforation [None]
  - Pelvic pain [None]

NARRATIVE: CASE EVENT DATE: 20130205
